FAERS Safety Report 7366834-9 (Version None)
Quarter: 2011Q1

REPORT INFORMATION
  Report Type: 
  Country: None (occurrence: None)
  Receive Date: 20110310
  Receipt Date: 20110225
  Transmission Date: 20110831
  Serious: Yes (Hospitalization)
  Sender: FDA-Public Use
  Company Number: IPC201102-000143

PATIENT
  Age: 64 Year
  Sex: Male
  Weight: 55.2 kg

DRUGS (5)
  1. METOPROLOL TARTRATE [Suspect]
     Indication: HYPERTENSION
     Dosage: 40 MG/DAY
  2. L-CARBOCISTEINE [Suspect]
  3. DIHYDROCODEINE PHOSPHATE [Suspect]
     Indication: MALAISE
     Dosage: 64 MG
  4. DEXTROMETHORPHAN HYDROBROMIDE [Suspect]
     Dosage: 30 MG
  5. DEQUALINIUM CHLORIDE [Suspect]

REACTIONS (3)
  - DRUG INTERACTION [None]
  - SEROTONIN SYNDROME [None]
  - DRUG LEVEL INCREASED [None]
